FAERS Safety Report 21285886 (Version 1)
Quarter: 2022Q3

REPORT INFORMATION
  Report Type: Spontaneous
  Country: DE (occurrence: DE)
  Receive Date: 20220902
  Receipt Date: 20220902
  Transmission Date: 20221026
  Serious: Yes (Hospitalization, Other)
  Sender: FDA-Public Use
  Company Number: DE-BRISTOL-MYERS SQUIBB COMPANY-2022-097458

PATIENT
  Age: 71 Year
  Sex: Female

DRUGS (2)
  1. OPDIVO [Suspect]
     Active Substance: NIVOLUMAB
     Indication: Malignant melanoma
     Route: 065
     Dates: start: 20210203
  2. YERVOY [Suspect]
     Active Substance: IPILIMUMAB
     Indication: Malignant melanoma
     Dosage: DOSE : UNAV.;     FREQ : UNAV.
     Route: 065
     Dates: start: 20210203

REACTIONS (5)
  - Colitis [Unknown]
  - Renal failure [Unknown]
  - Cardiac failure acute [Unknown]
  - Immune-mediated pancreatitis [Unknown]
  - Metastases to liver [Unknown]

NARRATIVE: CASE EVENT DATE: 20210201
